FAERS Safety Report 21976236 (Version 1)
Quarter: 2023Q1

REPORT INFORMATION
  Report Type: Spontaneous
  Country: IT (occurrence: IT)
  Receive Date: 20230210
  Receipt Date: 20230210
  Transmission Date: 20230418
  Serious: Yes (Hospitalization)
  Sender: FDA-Public Use
  Company Number: None

PATIENT
  Age: 38 Year
  Sex: Female

DRUGS (3)
  1. CLARITHROMYCIN [Suspect]
     Active Substance: CLARITHROMYCIN
     Indication: Atypical mycobacterial infection
     Dosage: 1 DOSAGE FORM, QD (DOSAGGIO: 1UNITA DI MISURA: UNITA POSOLOGICA FREQUENZA SOMMINISTRAZIONE: QUOTIDIA
     Route: 048
     Dates: start: 20220612, end: 20220713
  2. RIFABUTIN [Suspect]
     Active Substance: RIFABUTIN
     Indication: Atypical mycobacterial infection
     Dosage: 1 DOSAGE FORM, QD (DOSAGGIO: 1UNITA DI MISURA: UNITA POSOLOGICA FREQUENZA SOMMINISTRAZIONE: QUOTIDIA
     Route: 048
     Dates: start: 20220612, end: 20220713
  3. TRIUMEQ [Suspect]
     Active Substance: ABACAVIR SULFATE\DOLUTEGRAVIR SODIUM\LAMIVUDINE
     Indication: Tuberculosis
     Dosage: 1 DOSAGE FORM, QD (DOSAGGIO: 1UNITA DI MISURA: UNITA POSOLOGICA FREQUENZA SOMMINISTRAZIONE: QUOTIDIA
     Route: 048
     Dates: start: 20181108, end: 20220713

REACTIONS (4)
  - Drug-induced liver injury [Recovering/Resolving]
  - Vomiting [Recovering/Resolving]
  - Nausea [Recovering/Resolving]
  - Malaise [Recovering/Resolving]

NARRATIVE: CASE EVENT DATE: 20220712
